FAERS Safety Report 8960906 (Version 1)
Quarter: 2012Q4

REPORT INFORMATION
  Report Type: Spontaneous
  Country: US (occurrence: None)
  Receive Date: 20121211
  Receipt Date: 20121211
  Transmission Date: 20130627
  Serious: Yes (Other)
  Sender: FDA-Public Use
  Company Number: None

PATIENT
  Sex: Male
  Weight: 75.3 kg

DRUGS (1)
  1. LEXAPRO [Suspect]
     Route: 048
     Dates: start: 2012

REACTIONS (2)
  - Unevaluable event [None]
  - Drug intolerance [None]
